FAERS Safety Report 20201494 (Version 1)
Quarter: 2021Q4

REPORT INFORMATION
  Report Type: Spontaneous
  Country: FR (occurrence: FR)
  Receive Date: 20211217
  Receipt Date: 20211217
  Transmission Date: 20220303
  Serious: Yes (Hospitalization)
  Sender: FDA-Public Use
  Company Number: None

PATIENT
  Age: 56 Year
  Sex: Female
  Weight: 48 kg

DRUGS (1)
  1. TAMOXIFEN [Suspect]
     Active Substance: TAMOXIFEN
     Indication: Breast cancer
     Dosage: UNK (1 PAR JOUR)
     Route: 048
     Dates: start: 20190901, end: 20200831

REACTIONS (2)
  - Muscle spasms [Recovered/Resolved]
  - Uterine cyst [Recovered/Resolved]

NARRATIVE: CASE EVENT DATE: 20200924
